FAERS Safety Report 21232745 (Version 1)
Quarter: 2022Q3

REPORT INFORMATION
  Report Type: Report from Study
  Country: NL (occurrence: NL)
  Receive Date: 20220819
  Receipt Date: 20220819
  Transmission Date: 20221027
  Serious: Yes (Other)
  Sender: FDA-Public Use
  Company Number: NL-AMGEN-NLDSL2019066683

PATIENT
  Age: 70 Year
  Sex: Female

DRUGS (21)
  1. ROSUVASTATIN [Suspect]
     Active Substance: ROSUVASTATIN
     Indication: Product used for unknown indication
     Dosage: 20 MILLIGRAM DAILY; (AS CA-SALT), 1D1T
  2. XGEVA [Suspect]
     Active Substance: DENOSUMAB
     Indication: Metastases to bone
     Dosage: 120 MILLIGRAMS/1.7ML, Q4WK
  3. XGEVA [Suspect]
     Active Substance: DENOSUMAB
     Indication: Breast cancer
     Dosage: 120 MILLIGRAMS/1.7ML, Q4WK
     Dates: start: 20190327
  4. XGEVA [Suspect]
     Active Substance: DENOSUMAB
     Indication: Prophylaxis
     Dosage: 120 MILLIGRAMS/1.7ML, Q4WK
  5. XGEVA [Suspect]
     Active Substance: DENOSUMAB
     Dosage: 120 MILLIGRAMS/1.7ML, Q4WK
  6. XGEVA [Suspect]
     Active Substance: DENOSUMAB
     Dosage: 120 MILLIGRAMS (1.7ML), Q4WK
     Dates: start: 20190423
  7. CANNABIS SATIVA SUBSP. INDICA TOP [Concomitant]
     Active Substance: CANNABIS SATIVA SUBSP. INDICA TOP
     Indication: Product used for unknown indication
     Dosage: 20 MILLIGRAM PER MILLILITRE, QD
  8. PALBOCICLIB [Concomitant]
     Active Substance: PALBOCICLIB
     Indication: Product used for unknown indication
     Dosage: 100 MILLIGRAM DAILY;
  9. TRIAMCINOLONE ACETONIDE [Concomitant]
     Active Substance: TRIAMCINOLONE ACETONIDE
     Indication: Product used for unknown indication
     Dosage: UNK UNK, QD
  10. OMEPRAZOLE [Concomitant]
     Active Substance: OMEPRAZOLE
     Indication: Product used for unknown indication
     Dosage: 20 MILLIGRAM DAILY;
  11. DEXTRAN 70\HYPROMELLOSES [Concomitant]
     Active Substance: DEXTRAN 70\HYPROMELLOSES
     Indication: Product used for unknown indication
     Dosage: 1/3MG/ML FL 15ML, 1D1DR WHEN NECESSARY
  12. NAPROXEN [Concomitant]
     Active Substance: NAPROXEN
     Indication: Product used for unknown indication
     Dosage: 250 MILLIGRAM, 3D1T
  13. MIZOLASTINE [Concomitant]
     Active Substance: MIZOLASTINE
     Indication: Product used for unknown indication
     Dosage: 10 MILLIGRAM DAILY;
  14. FULVESTRANT [Concomitant]
     Active Substance: FULVESTRANT
     Indication: Product used for unknown indication
     Dosage: 250MG=5ML (50MG/ML), 1X4W2INJ
  15. CALCIUM CARBONATE\CHOLECALCIFEROL [Concomitant]
     Active Substance: CALCIUM CARBONATE\CHOLECALCIFEROL
     Indication: Product used for unknown indication
     Dosage: 1.25 800IE (500MG CA), QD
  16. TRAVOPROST [Concomitant]
     Active Substance: TRAVOPROST
     Indication: Product used for unknown indication
     Dosage: 40 MICROGRAM PER MILLIGRAM (FL 2,5ML), QD 1D1DR
  17. VASELINE CETOMACROGOL CREAM [Concomitant]
     Indication: Product used for unknown indication
     Dosage: 10 PERCENT, 2XD
  18. LETROZOLE [Concomitant]
     Active Substance: LETROZOLE
     Indication: Product used for unknown indication
     Dosage: 2.5 MILLIGRAM DAILY;
  19. MICONAZOLE NITRATE [Concomitant]
     Active Substance: MICONAZOLE NITRATE
     Indication: Product used for unknown indication
     Dosage: 20 MILLIGRAM PER GRAM, 2D
  20. DORZOLAMIDE HYDROCHLORIDE\TIMOLOL MALEATE [Concomitant]
     Active Substance: DORZOLAMIDE HYDROCHLORIDE\TIMOLOL MALEATE
     Indication: Product used for unknown indication
     Dosage: 5/20MG/ML M 0.2ML Z CONS 1XD 1 DROP
  21. LIDOCAINE [Concomitant]
     Active Substance: LIDOCAINE
     Indication: Product used for unknown indication
     Dosage: UNK UNK, QD

REACTIONS (13)
  - Breast cancer metastatic [Not Recovered/Not Resolved]
  - Cancer pain [Unknown]
  - Basal cell carcinoma [Unknown]
  - Discomfort [Unknown]
  - Injection site pain [Unknown]
  - Arthralgia [Not Recovered/Not Resolved]
  - Headache [Not Recovered/Not Resolved]
  - Dizziness [Unknown]
  - Eye movement disorder [Not Recovered/Not Resolved]
  - Dyspnoea [Not Recovered/Not Resolved]
  - Haemoglobin decreased [Not Recovered/Not Resolved]
  - Malaise [Unknown]
  - Pain in extremity [Not Recovered/Not Resolved]

NARRATIVE: CASE EVENT DATE: 20190101
